FAERS Safety Report 7009125-8 (Version None)
Quarter: 2010Q3

REPORT INFORMATION
  Report Type: 
  Country: None (occurrence: None)
  Receive Date: 20100923
  Receipt Date: 20100913
  Transmission Date: 20110219
  Serious: Yes (Hospitalization)
  Sender: FDA-Public Use
  Company Number: FR-JNJFOC-20100905111

PATIENT
  Sex: Female

DRUGS (21)
  1. TOPIRAMATE [Suspect]
     Indication: EPILEPSY
     Dosage: 50/0/100
     Route: 048
     Dates: start: 20100516, end: 20100531
  2. TOPIRAMATE [Suspect]
     Dosage: ONCE A DAY
     Route: 048
     Dates: start: 20100516, end: 20100531
  3. TOPIRAMATE [Suspect]
     Dosage: TWICE A DAY
     Route: 048
     Dates: start: 20100516, end: 20100531
  4. TOPIRAMATE [Suspect]
     Dosage: ONCE A DAY
     Route: 048
     Dates: start: 20100516, end: 20100531
  5. TOPIRAMATE [Suspect]
     Dosage: TWICE A DAY
     Route: 048
     Dates: start: 20100516, end: 20100531
  6. TOPIRAMATE [Suspect]
     Dosage: TWICE A DAY
     Route: 048
     Dates: start: 20100516, end: 20100531
  7. TOPIRAMATE [Suspect]
     Dosage: TWICE A DAY
     Route: 048
     Dates: start: 20100516, end: 20100531
  8. LOVENOX [Suspect]
     Indication: PRODUCT USED FOR UNKNOWN INDICATION
     Dosage: ONCE A DAY
     Route: 058
     Dates: start: 20100517, end: 20100611
  9. PLAVIX [Suspect]
     Indication: PRODUCT USED FOR UNKNOWN INDICATION
     Dosage: ONCE A DAY
     Route: 048
     Dates: start: 20100517, end: 20100521
  10. LEXOMIL [Suspect]
     Indication: PRODUCT USED FOR UNKNOWN INDICATION
     Route: 048
  11. MOPRAL [Suspect]
     Indication: PRODUCT USED FOR UNKNOWN INDICATION
     Dosage: DAILY
     Route: 048
  12. KARDEGIC [Suspect]
     Indication: PRODUCT USED FOR UNKNOWN INDICATION
     Dosage: DAILY
     Route: 048
     Dates: start: 20100514, end: 20100521
  13. KARDEGIC [Suspect]
     Route: 048
     Dates: start: 20100514, end: 20100521
  14. NIMOTOP [Concomitant]
     Dosage: 6 TIMES A DAY
     Route: 048
  15. AMITRIPTYLINE HCL [Concomitant]
     Dosage: ONCE A DAY
     Route: 042
  16. TRAMADOL HCL [Concomitant]
     Route: 048
     Dates: start: 20100515, end: 20100516
  17. METHYLPREDNISOLONE [Concomitant]
     Dosage: DAILY
  18. PRIMPERAN TAB [Concomitant]
     Route: 042
     Dates: start: 20100515, end: 20100516
  19. PERFALGAN [Concomitant]
     Route: 042
  20. PROFENID [Concomitant]
     Route: 042
  21. ASPEGIC 1000 [Concomitant]
     Route: 042

REACTIONS (1)
  - NEUTROPENIA [None]
